FAERS Safety Report 5374896-3 (Version None)
Quarter: 2007Q2

REPORT INFORMATION
  Report Type: 
  Country: None (occurrence: None)
  Receive Date: 20070627
  Receipt Date: 20070627
  Transmission Date: 20071010
  Serious: Yes (Death)
  Sender: FDA-Public Use
  Company Number: None

PATIENT
  Age: 82 Year
  Sex: Female
  Weight: 100 kg

DRUGS (1)
  1. NOVOLIN R [Suspect]
     Indication: HYPERGLYCAEMIA
     Dosage: SLIDING SCALE
     Dates: start: 20070522, end: 20070531

REACTIONS (3)
  - BLOOD GLUCOSE DECREASED [None]
  - BRAIN DAMAGE [None]
  - CARDIAC ARREST [None]
